FAERS Safety Report 13576362 (Version 2)
Quarter: 2017Q2

REPORT INFORMATION
  Report Type: Report from Study
  Country: IT (occurrence: IT)
  Receive Date: 20170524
  Receipt Date: 20170601
  Transmission Date: 20170830
  Serious: Yes (Hospitalization, Other)
  Sender: FDA-Public Use
  Company Number: IT-BRISTOL-MYERS SQUIBB COMPANY-BMS-2017-042307

PATIENT
  Age: 69 Year
  Sex: Male
  Weight: 74 kg

DRUGS (1)
  1. NIVOLUMAB [Suspect]
     Active Substance: NIVOLUMAB
     Indication: CLEAR CELL RENAL CELL CARCINOMA
     Dosage: 210 MG, UNK
     Route: 042
     Dates: start: 20160606, end: 20160621

REACTIONS (4)
  - Oxygen saturation decreased [Not Recovered/Not Resolved]
  - Pleurodesis [Unknown]
  - Pleural effusion [Not Recovered/Not Resolved]
  - Aspiration pleural cavity [Unknown]

NARRATIVE: CASE EVENT DATE: 20160607
